FAERS Safety Report 13129857 (Version 2)
Quarter: 2017Q4

REPORT INFORMATION
  Report Type: Spontaneous
  Country: FR (occurrence: FR)
  Receive Date: 20170119
  Receipt Date: 20171121
  Transmission Date: 20180320
  Serious: Yes (Hospitalization)
  Sender: FDA-Public Use
  Company Number: PHHY2017FR005499

PATIENT
  Age: 80 Year
  Sex: Female
  Weight: 52 kg

DRUGS (2)
  1. FLAGYL [Suspect]
     Active Substance: METRONIDAZOLE\METRONIDAZOLE HYDROCHLORIDE
     Indication: CLOSTRIDIUM DIFFICILE COLITIS
     Dosage: 500 MG, TID
     Route: 048
     Dates: start: 20161205, end: 20161225
  2. TAFINLAR [Suspect]
     Active Substance: DABRAFENIB MESYLATE
     Indication: MALIGNANT MELANOMA
     Dosage: 75 MG, BID
     Route: 048
     Dates: start: 20161207, end: 20161227

REACTIONS (6)
  - Seborrhoeic keratosis [Recovered/Resolved]
  - Pyrexia [Recovered/Resolved]
  - Vomiting [Recovered/Resolved]
  - Rash maculo-papular [Recovered/Resolved]
  - Photodermatosis [Recovered/Resolved]
  - Oral candidiasis [Recovered/Resolved]

NARRATIVE: CASE EVENT DATE: 20161220
